FAERS Safety Report 24180151 (Version 2)
Quarter: 2024Q3

REPORT INFORMATION
  Report Type: Spontaneous
  Country: JP (occurrence: JP)
  Receive Date: 20240806
  Receipt Date: 20240816
  Transmission Date: 20241016
  Serious: Yes (Hospitalization)
  Sender: ARGENX BVBA
  Company Number: JP-ARGENX-2024-ARGX-JP006040

PATIENT

DRUGS (1)
  1. EFGARTIGIMOD ALFA\HYALURONIDASE-QVFC [Suspect]
     Active Substance: EFGARTIGIMOD ALFA\HYALURONIDASE-QVFC
     Indication: Myasthenia gravis
     Dosage: 5.8 ML
     Route: 058
     Dates: start: 20240708

REACTIONS (1)
  - Blood pressure decreased [Recovered/Resolved]
